FAERS Safety Report 16103057 (Version 1)
Quarter: 2019Q1

REPORT INFORMATION
  Report Type: Spontaneous
  Country: NL (occurrence: NL)
  Receive Date: 20190321
  Receipt Date: 20190321
  Transmission Date: 20190418
  Serious: Yes (Hospitalization)
  Sender: FDA-Public Use
  Company Number: NL-AUROBINDO-AUR-APL-2019-014816

PATIENT

DRUGS (5)
  1. PREDNISONE. [Suspect]
     Active Substance: PREDNISONE
     Dosage: 10 MILLIGRAM (REDUCTION OF 10 MG/DAY EVERY MONTH)
     Route: 065
     Dates: start: 201705
  2. NIVOLUMAB [Concomitant]
     Active Substance: NIVOLUMAB
     Indication: LUNG ADENOCARCINOMA STAGE IV
     Dosage: 3 MILLIGRAM/KILOGRAM,EVERY 2 WEEKS
     Route: 065
     Dates: start: 201609
  3. PREDNISONE. [Suspect]
     Active Substance: PREDNISONE
     Indication: PNEUMONITIS
     Dosage: 50 MILLIGRAM, ONCE A DAY (HIGH-DOSE 50 MG, QD )
     Route: 048
     Dates: start: 2017
  4. PREDNISONE. [Suspect]
     Active Substance: PREDNISONE
     Dosage: 60 MILLIGRAM, ONCE A DAY
     Route: 065
     Dates: start: 201705
  5. PREDNISONE. [Suspect]
     Active Substance: PREDNISONE
     Dosage: UNK (10MG/DAY WEEKLY )
     Route: 065
     Dates: start: 2017, end: 201702

REACTIONS (6)
  - Rebound effect [Recovered/Resolved]
  - Pyrexia [Recovered/Resolved]
  - Malaise [Recovered/Resolved]
  - Pneumonitis [Recovered/Resolved]
  - Nausea [Recovered/Resolved]
  - Arthralgia [Recovered/Resolved]

NARRATIVE: CASE EVENT DATE: 201702
